FAERS Safety Report 24756684 (Version 1)
Quarter: 2024Q4

REPORT INFORMATION
  Report Type: Spontaneous
  Country: CN (occurrence: CN)
  Receive Date: 20241220
  Receipt Date: 20241220
  Transmission Date: 20250115
  Serious: Yes (Other)
  Sender: SANOFI AVENTIS
  Company Number: CN-SA-2024SA374122

PATIENT
  Age: 53 Year
  Sex: Male
  Weight: 70 kg

DRUGS (3)
  1. OXALIPLATIN [Suspect]
     Active Substance: OXALIPLATIN
     Indication: Chemotherapy
     Dosage: 230 MG, 1X
     Route: 041
     Dates: start: 20241123, end: 20241123
  2. CADONILIMAB [Concomitant]
     Active Substance: CADONILIMAB
     Indication: Chemotherapy
     Dosage: 500 MG, 1X
     Route: 041
     Dates: start: 20241122, end: 20241122
  3. GIMERACIL\OTERACIL\TEGAFUR [Concomitant]
     Active Substance: GIMERACIL\OTERACIL POTASSIUM\TEGAFUR
     Indication: Chemotherapy
     Dosage: 50 MG, BID
     Route: 048
     Dates: start: 20241123, end: 20241206

REACTIONS (2)
  - Neurotoxicity [Not Recovered/Not Resolved]
  - Hypoaesthesia [Not Recovered/Not Resolved]

NARRATIVE: CASE EVENT DATE: 20241213
